FAERS Safety Report 8057407-3 (Version None)
Quarter: 2012Q1

REPORT INFORMATION
  Report Type: 
  Country: None (occurrence: None)
  Receive Date: 20120119
  Receipt Date: 20120109
  Transmission Date: 20120608
  Serious: Yes (Life-Threatening, Hospitalization, Other)
  Sender: FDA-Public Use
  Company Number: US-RB-034279-11

PATIENT
  Age: 60 Year
  Sex: Female

DRUGS (4)
  1. SUBOXONE [Suspect]
     Indication: DRUG DEPENDENCE
     Dosage: 8 MG TWICE DAILY
     Route: 060
     Dates: start: 20050101
  2. SUBOXONE [Suspect]
     Indication: DRUG DEPENDENCE
     Dosage: 16-20 MG DAILY
     Route: 060
  3. INHALER TREATMENT FOR COPD [Concomitant]
     Indication: CHRONIC OBSTRUCTIVE PULMONARY DISEASE
     Dosage: UNKNOWN DOSING REGIMEN
     Route: 055
  4. CHANTIX [Concomitant]
     Indication: TOBACCO ABUSE
     Dosage: UNKNOWN DOSING REGIMEN
     Route: 065

REACTIONS (13)
  - INCREASED TENDENCY TO BRUISE [None]
  - ORAL ADMINISTRATION COMPLICATION [None]
  - MEMORY IMPAIRMENT [None]
  - CHRONIC OBSTRUCTIVE PULMONARY DISEASE [None]
  - OEDEMA PERIPHERAL [None]
  - PARAESTHESIA [None]
  - LOSS OF CONSCIOUSNESS [None]
  - HYPOAESTHESIA [None]
  - BRUXISM [None]
  - GRANULOMA [None]
  - CEREBROVASCULAR ACCIDENT [None]
  - BRAIN NEOPLASM [None]
  - FALL [None]
